FAERS Safety Report 6347374-2 (Version None)
Quarter: 2009Q3

REPORT INFORMATION
  Report Type: 
  Country: None (occurrence: None)
  Receive Date: 20090910
  Receipt Date: 20090831
  Transmission Date: 20100115
  Serious: Yes (Other)
  Sender: FDA-Public Use
  Company Number: US-JNJFOC-20090607287

PATIENT
  Sex: Female
  Weight: 70.76 kg

DRUGS (5)
  1. REMICADE [Suspect]
     Dosage: 3 VIALS
     Route: 042
     Dates: start: 20070925, end: 20080516
  2. REMICADE [Suspect]
     Dosage: 3 VIALS
     Route: 042
     Dates: start: 20070925, end: 20080516
  3. REMICADE [Suspect]
     Dosage: 3 VIALS
     Route: 042
     Dates: start: 20070925, end: 20080516
  4. REMICADE [Suspect]
     Dosage: 3 VIALS
     Route: 042
     Dates: start: 20070925, end: 20080516
  5. REMICADE [Suspect]
     Indication: RHEUMATOID ARTHRITIS
     Dosage: 3 VIALS
     Route: 042
     Dates: start: 20070925, end: 20080516

REACTIONS (1)
  - PANCREATIC CARCINOMA [None]
